FAERS Safety Report 18841245 (Version 1)
Quarter: 2021Q1

REPORT INFORMATION
  Report Type: Spontaneous
  Country: LB (occurrence: LB)
  Receive Date: 20210203
  Receipt Date: 20210203
  Transmission Date: 20210419
  Serious: Yes (Other)
  Sender: FDA-Public Use
  Company Number: LB-ASTRAZENECA-2021A016465

PATIENT
  Sex: Female

DRUGS (1)
  1. FASLODEX [Suspect]
     Active Substance: FULVESTRANT
     Indication: OESTROGEN RECEPTOR ASSAY POSITIVE
     Dosage: 500 MG MONTHLY? 250MG AS 1 INJECTION FOR THE FIRST DOSE AND 1 INJECTION FOR THE SECOND DOSE DURIN...
     Route: 030
     Dates: start: 20201226

REACTIONS (1)
  - Metastases to lung [Not Recovered/Not Resolved]

NARRATIVE: CASE EVENT DATE: 20201226
